FAERS Safety Report 10368668 (Version 1)
Quarter: 2014Q3

REPORT INFORMATION
  Report Type: Report from Study
  Country: US (occurrence: US)
  Receive Date: 20140807
  Receipt Date: 20140807
  Transmission Date: 20150326
  Serious: Yes (Other)
  Sender: FDA-Public Use
  Company Number: US-ACTELION-A-NJ2014-103317

PATIENT
  Age: 67 Year
  Sex: Female

DRUGS (2)
  1. TRACLEER [Suspect]
     Active Substance: BOSENTAN\BOSENTAN MONOHYDRATE
     Indication: PULMONARY ARTERIAL HYPERTENSION
     Dosage: UNK
     Route: 048
  2. TYVASO [Suspect]
     Active Substance: TREPROSTINIL
     Dosage: 9 UNK, QID

REACTIONS (5)
  - Back pain [Unknown]
  - Pain in extremity [Unknown]
  - Deafness [Unknown]
  - Hypoaesthesia [Unknown]
  - Cough [Unknown]
